APPROVED DRUG PRODUCT: CHLORPHENIRAMINE MALEATE
Active Ingredient: CHLORPHENIRAMINE MALEATE
Strength: 2MG/5ML
Dosage Form/Route: SYRUP;ORAL
Application: A087520 | Product #001
Applicant: PHARMACEUTICAL ASSOC INC DIV BEACH PRODUCTS
Approved: Feb 10, 1982 | RLD: No | RS: No | Type: DISCN